FAERS Safety Report 19975752 (Version 4)
Quarter: 2021Q4

REPORT INFORMATION
  Report Type: Spontaneous
  Country: ZA (occurrence: ZA)
  Receive Date: 20211021
  Receipt Date: 20211201
  Transmission Date: 20220303
  Serious: Yes (Other)
  Sender: FDA-Public Use
  Company Number: ZA-CELLTRION INC.-2021ZA014105

PATIENT

DRUGS (12)
  1. INFLIXIMAB [Suspect]
     Active Substance: INFLIXIMAB
     Indication: Colitis ulcerative
     Dosage: UNK
     Dates: start: 20201112
  2. INFLIXIMAB [Suspect]
     Active Substance: INFLIXIMAB
     Dosage: 640 MG 2WEEKS
     Route: 042
     Dates: start: 20210129
  3. INFLIXIMAB [Suspect]
     Active Substance: INFLIXIMAB
     Dosage: 640 MG 6 WEEKS
     Route: 042
     Dates: start: 20210325
  4. INFLIXIMAB [Suspect]
     Active Substance: INFLIXIMAB
     Dosage: 640 MG, 8 WEEKLY
     Route: 042
     Dates: start: 20210514
  5. INFLIXIMAB [Suspect]
     Active Substance: INFLIXIMAB
     Dosage: 640 MG
     Route: 042
     Dates: start: 20210702
  6. INFLIXIMAB [Suspect]
     Active Substance: INFLIXIMAB
     Dosage: 640 MG
     Route: 042
     Dates: start: 20210901
  7. INFLIXIMAB [Suspect]
     Active Substance: INFLIXIMAB
     Dosage: 640 MG
     Route: 042
     Dates: start: 20211026
  8. AZATHIOPRINE [Concomitant]
     Active Substance: AZATHIOPRINE
     Dosage: 50MG PER OS DAILY
     Route: 048
  9. ASACOL [Concomitant]
     Active Substance: MESALAMINE
     Dosage: 4.8G PER OS DAILY
     Route: 048
  10. PENTASA [Concomitant]
     Active Substance: MESALAMINE
     Dosage: PENTASA 1G SUPP PR NOCTE
     Route: 054
  11. VITAMIN D NOS [Concomitant]
     Active Substance: VITAMIN D NOS
     Dosage: 5000 IU PER OS WEEKLY
     Route: 048
  12. FERROUS BISGLYCINATE\FOLIC ACID [Concomitant]
     Active Substance: FERROUS BISGLYCINATE\FOLIC ACID
     Dosage: 24MG PER OS DAILY
     Route: 048

REACTIONS (2)
  - COVID-19 [Unknown]
  - Intentional dose omission [Unknown]

NARRATIVE: CASE EVENT DATE: 20211012
